FAERS Safety Report 6756910-3 (Version None)
Quarter: 2010Q2

REPORT INFORMATION
  Report Type: 
  Country: None (occurrence: None)
  Receive Date: 20100604
  Receipt Date: 20100528
  Transmission Date: 20101027
  Serious: Yes (Other)
  Sender: FDA-Public Use
  Company Number: PHHO2010AU08308

PATIENT
  Sex: Male

DRUGS (3)
  1. STI571/CGP57148B T35717+TAB [Suspect]
     Indication: CHRONIC MYELOID LEUKAEMIA
     Dosage: 800 MG, UNK
     Route: 048
     Dates: start: 20050101
  2. STI571/CGP57148B T35717+TAB [Suspect]
     Dosage: 600 MG, UNK
     Route: 048
  3. STI571/CGP57148B T35717+TAB [Suspect]
     Dosage: 400 MG, UNK
     Route: 048

REACTIONS (1)
  - RENAL FAILURE CHRONIC [None]
